FAERS Safety Report 19591787 (Version 2)
Quarter: 2021Q3

REPORT INFORMATION
  Report Type: Report from Study
  Country: US (occurrence: US)
  Receive Date: 20210721
  Receipt Date: 20210913
  Transmission Date: 20211014
  Serious: Yes (Hospitalization)
  Sender: FDA-Public Use
  Company Number: US-SEATTLE GENETICS-2021SGN03714

PATIENT
  Age: 79 Year
  Sex: Female

DRUGS (2)
  1. TUCATINIB [Suspect]
     Active Substance: TUCATINIB
     Indication: NEOPLASM
     Dosage: 300 MG, 2 IN 1 D; DOSE LAST STUDY DRUG ADMIN PRIOR SAE IS 300 MG
     Route: 042
     Dates: start: 20210318
  2. ADO?TRASTUZUMAB EMTANSINE. [Suspect]
     Active Substance: ADO-TRASTUZUMAB EMTANSINE
     Indication: NEOPLASM
     Dosage: 217 MG, 1 IN 1 M; DOSE LAST STUDY DRUG ADMIN PRIOR SAE IS 183 MG
     Route: 042
     Dates: start: 20210318

REACTIONS (1)
  - Dyspnoea [Recovered/Resolved]

NARRATIVE: CASE EVENT DATE: 20210609
